FAERS Safety Report 13911087 (Version 1)
Quarter: 2017Q3

REPORT INFORMATION
  Report Type: Spontaneous
  Country: CN (occurrence: CN)
  Receive Date: 20170828
  Receipt Date: 20170828
  Transmission Date: 20171127
  Serious: Yes (Other)
  Sender: FDA-Public Use
  Company Number: CN-JNJFOC-20170812802

PATIENT

DRUGS (3)
  1. MOTRIN [Suspect]
     Active Substance: IBUPROFEN
     Indication: PATENT DUCTUS ARTERIOSUS
     Dosage: INFANT WEIGHT OF 10 MG/KG, FOLLOWED BY INTERVAL OF 24 H AND 48 H, AT DOSE OF 5 MG/KG
     Route: 048
  2. MOTRIN [Suspect]
     Active Substance: IBUPROFEN
     Route: 048
  3. TYLENOL [Suspect]
     Active Substance: ACETAMINOPHEN
     Indication: PATENT DUCTUS ARTERIOSUS
     Dosage: ADMINISTERED ACCORDING TO THE INFANT WEIGHT OF 16 MG/KG, ONCE EVERY 6 H, WITH 72 H
     Route: 065

REACTIONS (8)
  - Oliguria [Unknown]
  - Off label use [Unknown]
  - Gastrointestinal haemorrhage [Unknown]
  - Wrong technique in product usage process [Unknown]
  - Hyperbilirubinaemia [Unknown]
  - Necrotising colitis [Unknown]
  - Intraventricular haemorrhage [Unknown]
  - Product use in unapproved indication [Unknown]
